FAERS Safety Report 8487391-X (Version None)
Quarter: 2012Q2

REPORT INFORMATION
  Report Type: 
  Country: None (occurrence: None)
  Receive Date: 20120628
  Receipt Date: 20120628
  Transmission Date: 20120825
  Serious: Yes (Other)
  Sender: FDA-Public Use
  Company Number: None

PATIENT
  Age: 62 Year
  Sex: Male

DRUGS (2)
  1. PEGASYS [Suspect]
     Indication: HEPATITIS C
     Dosage: PEGASYS 180MCG WEEKLY SQ
     Route: 058
     Dates: start: 20120201, end: 20120601
  2. RIBAVIRIN [Suspect]
     Indication: HEPATITIS C
     Dosage: RIBAVIRIN 600MG BID PO
     Route: 048
     Dates: start: 20120201, end: 20120501

REACTIONS (2)
  - IMPAIRED WORK ABILITY [None]
  - FATIGUE [None]
